FAERS Safety Report 4619711-8 (Version None)
Quarter: 2005Q1

REPORT INFORMATION
  Report Type: 
  Country: None (occurrence: None)
  Receive Date: 20050317
  Receipt Date: 20050317
  Transmission Date: 20050727
  Serious: No
  Sender: FDA-Public Use
  Company Number: None

PATIENT
  Sex: Female
  Weight: 86.9092 kg

DRUGS (1)
  1. LEVOTHYROXINE 125 MCG BY SANDOZ [Suspect]
     Indication: HYPOTHYROIDISM
     Dosage: 1 TAB PO QD
     Route: 048
     Dates: start: 20040727, end: 20050127

REACTIONS (3)
  - PHARMACEUTICAL PRODUCT COMPLAINT [None]
  - WEIGHT INCREASED [None]
  - WEIGHT LOSS POOR [None]
